FAERS Safety Report 19232025 (Version 2)
Quarter: 2021Q3

REPORT INFORMATION
  Report Type: Spontaneous
  Country: US (occurrence: US)
  Receive Date: 20210507
  Receipt Date: 20210903
  Transmission Date: 20211014
  Serious: No
  Sender: FDA-Public Use
  Company Number: US-BIOGEN-2021BI01007436

PATIENT
  Sex: Female

DRUGS (2)
  1. VUMERITY [Suspect]
     Active Substance: DIROXIMEL FUMARATE
     Dosage: DIRECTIONS: TAKE 1 CAPSULE BY MOUTH 2 TIMES A DAY FOR 7 DAYS [THEN 2 CAPSULES BY MOUTH 2 TIMES A ...
     Route: 048
  2. VUMERITY [Suspect]
     Active Substance: DIROXIMEL FUMARATE
     Indication: MULTIPLE SCLEROSIS
     Route: 048
     Dates: start: 20210427, end: 202108

REACTIONS (2)
  - Abdominal discomfort [Unknown]
  - Dizziness [Not Recovered/Not Resolved]
